FAERS Safety Report 23383006 (Version 1)
Quarter: 2024Q1

REPORT INFORMATION
  Report Type: Spontaneous
  Country: US (occurrence: None)
  Receive Date: 20240108
  Receipt Date: 20240108
  Transmission Date: 20240410
  Serious: Yes (Life-Threatening)
  Sender: FDA-Public Use
  Company Number: None

PATIENT
  Age: 71 Year
  Sex: Male
  Weight: 88.2 kg

DRUGS (7)
  1. TERAZOSIN [Suspect]
     Active Substance: TERAZOSIN HYDROCHLORIDE
     Indication: Hypertension
     Dosage: FREQUENCY : AT BEDTIME;?
     Route: 048
     Dates: start: 20240105, end: 20240105
  2. LISINOPRIL [Concomitant]
     Active Substance: LISINOPRIL
  3. HYDROCHLOROTHIAZIDE [Concomitant]
     Active Substance: HYDROCHLOROTHIAZIDE
  4. LEVOTHYROXINE [Concomitant]
     Active Substance: LEVOTHYROXINE
  5. MIRTAZAPINE [Concomitant]
     Active Substance: MIRTAZAPINE
  6. AMBIEN [Concomitant]
     Active Substance: ZOLPIDEM TARTRATE
  7. XANAX [Concomitant]
     Active Substance: ALPRAZOLAM

REACTIONS (6)
  - Circulatory collapse [None]
  - Fall [None]
  - Lack of spontaneous speech [None]
  - Incontinence [None]
  - Blood pressure systolic decreased [None]
  - Pallor [None]

NARRATIVE: CASE EVENT DATE: 20240105
